FAERS Safety Report 9825497 (Version 1)
Quarter: 2014Q1

REPORT INFORMATION
  Report Type: Spontaneous
  Country: US (occurrence: US)
  Receive Date: 20140117
  Receipt Date: 20140117
  Transmission Date: 20141002
  Serious: No
  Sender: FDA-Public Use
  Company Number: US-PFIZER INC-2014014282

PATIENT
  Age: 62 Year
  Sex: Female
  Weight: 90.7 kg

DRUGS (13)
  1. EFFEXOR XR [Suspect]
     Indication: MAJOR DEPRESSION
     Dosage: UNK
     Dates: start: 201011, end: 201307
  2. EFFEXOR XR [Suspect]
     Indication: POST-TRAUMATIC STRESS DISORDER
  3. EFFEXOR XR [Suspect]
     Indication: AGORAPHOBIA
  4. VENLAFAXINE HCL [Suspect]
     Indication: MAJOR DEPRESSION
     Dosage: UNK
  5. VENLAFAXINE HCL [Suspect]
     Indication: POST-TRAUMATIC STRESS DISORDER
  6. VENLAFAXINE HCL [Suspect]
     Indication: AGORAPHOBIA
  7. VENLAFAXINE HYDROCHLORIDE [Suspect]
     Indication: MAJOR DEPRESSION
     Dosage: UNK
     Dates: start: 201307
  8. VENLAFAXINE HYDROCHLORIDE [Suspect]
     Indication: POST-TRAUMATIC STRESS DISORDER
  9. VENLAFAXINE HYDROCHLORIDE [Suspect]
     Indication: AGORAPHOBIA
  10. VENLAFAXINE HYDROCHLORIDE [Suspect]
     Indication: MAJOR DEPRESSION
     Dosage: UNK
     Dates: start: 20131230
  11. VENLAFAXINE HYDROCHLORIDE [Suspect]
     Indication: POST-TRAUMATIC STRESS DISORDER
  12. VENLAFAXINE HYDROCHLORIDE [Suspect]
     Indication: AGORAPHOBIA
  13. WELLBUTRIN [Suspect]
     Indication: DEPRESSION
     Dosage: 100 MG, DAILY

REACTIONS (2)
  - Arthropathy [Unknown]
  - Drug ineffective [Unknown]
